FAERS Safety Report 10067764 (Version 1)
Quarter: 2014Q2

REPORT INFORMATION
  Report Type: Spontaneous
  Country: US (occurrence: None)
  Receive Date: 20140407
  Receipt Date: 20140407
  Transmission Date: 20141212
  Serious: Yes (Other)
  Sender: FDA-Public Use
  Company Number: SYM-2014-19295

PATIENT
  Age: 29 Year
  Sex: Male

DRUGS (1)
  1. METRONIDAZOLE (METRONIDAZOLE) (METRONIDAZOLE) [Suspect]
     Indication: CROHN^S DISEASE
     Dates: end: 2005

REACTIONS (6)
  - Encephalopathy [None]
  - Disease recurrence [None]
  - Polyneuropathy [None]
  - Dysarthria [None]
  - Ataxia [None]
  - Nuclear magnetic resonance imaging abnormal [None]
